FAERS Safety Report 8037177-5 (Version None)
Quarter: 2012Q1

REPORT INFORMATION
  Report Type: 
  Country: None (occurrence: None)
  Receive Date: 20120109
  Receipt Date: 20111230
  Transmission Date: 20120608
  Serious: Yes (Hospitalization)
  Sender: FDA-Public Use
  Company Number: 1000026661

PATIENT
  Age: 55 Year
  Sex: Female

DRUGS (4)
  1. SAVELLA [Suspect]
     Indication: FIBROMYALGIA
     Dosage: 200 MG (200 MG,2 IN 1 D),ORAL
     Route: 048
     Dates: start: 20111101, end: 20111202
  2. HYDROXYCHLOROQUINE SULFATE [Concomitant]
  3. SAVELLA [Suspect]
     Indication: FIBROMYALGIA
     Dosage: 200 MG (200 MG,1 IN 1 D),ORAL
     Route: 048
     Dates: start: 20101201, end: 20111101
  4. FORTEO [Suspect]
     Indication: OSTEOPOROSIS
     Dosage: 20 MCG (20 MCG,1 IN 1 D), SUBCUTANEOUS
     Route: 058
     Dates: end: 20111202

REACTIONS (5)
  - HYPERTENSION [None]
  - NAUSEA [None]
  - DIZZINESS [None]
  - INTRACRANIAL ANEURYSM [None]
  - HEADACHE [None]
